FAERS Safety Report 8540646-2 (Version None)
Quarter: 2012Q3

REPORT INFORMATION
  Report Type: 
  Country: None (occurrence: None)
  Receive Date: 20120726
  Receipt Date: 20120717
  Transmission Date: 20120928
  Serious: Yes (Death)
  Sender: FDA-Public Use
  Company Number: US-MPIJNJ-2012-03792

PATIENT
  Sex: Female

DRUGS (4)
  1. CYTARABINE [Suspect]
     Route: 037
  2. TEMOZOLOMIDE [Suspect]
     Indication: BRAIN NEOPLASM
  3. ETOPOSIDE [Suspect]
     Route: 048
  4. VELCADE [Suspect]
     Indication: BRAIN NEOPLASM

REACTIONS (1)
  - DEATH [None]
